FAERS Safety Report 6245269-6 (Version None)
Quarter: 2009Q2

REPORT INFORMATION
  Report Type: 
  Country: None (occurrence: None)
  Receive Date: 20090625
  Receipt Date: 20090622
  Transmission Date: 20091009
  Serious: Yes (Life-Threatening, Other)
  Sender: FDA-Public Use
  Company Number: DE-MERCK-0905DEU00002

PATIENT
  Age: 70 Year
  Sex: Female

DRUGS (5)
  1. JANUVIA [Suspect]
     Route: 048
     Dates: end: 20090101
  2. METFORMIN HYDROCHLORIDE [Suspect]
     Route: 048
  3. BISOPROLOL [Concomitant]
     Route: 065
  4. BROMAZEPAM [Concomitant]
     Route: 065
  5. CITALOPRAM [Concomitant]
     Route: 065

REACTIONS (3)
  - DEHYDRATION [None]
  - LACTIC ACIDOSIS [None]
  - RENAL FAILURE ACUTE [None]
